FAERS Safety Report 4419725-7 (Version None)
Quarter: 2004Q3

REPORT INFORMATION
  Report Type: 
  Country: None (occurrence: None)
  Receive Date: 20040805
  Receipt Date: 20040805
  Transmission Date: 20050211
  Serious: Yes (Death)
  Sender: FDA-Public Use
  Company Number: None

PATIENT
  Age: 62 Year
  Sex: Female
  Weight: 77.1115 kg

DRUGS (1)
  1. VIOXX  25 MG  MERK + CO. INC [Suspect]
     Dosage: 1 TABLET   DAILY   ORAL
     Route: 048
     Dates: start: 20011016, end: 20040515

REACTIONS (1)
  - EPISTAXIS [None]
